FAERS Safety Report 9233902 (Version 2)
Quarter: 2013Q2

REPORT INFORMATION
  Report Type: Spontaneous
  Country: US (occurrence: None)
  Receive Date: 20121031
  Receipt Date: 20130107
  Transmission Date: 20140414
  Serious: Yes (Other)
  Sender: FDA-Public Use
  Company Number: PHEH2012US016513

PATIENT
  Age: 40 Year
  Sex: Female

DRUGS (9)
  1. GILENYA [Suspect]
     Indication: MULTIPLE SCLEROSIS
     Route: 048
     Dates: start: 20120816
  2. BUPROPION (BUPROPION) [Concomitant]
  3. CLONAZEPAM (CLONAZEPAM) [Concomitant]
  4. IBUPROFEN (IBUPROFEN) [Concomitant]
  5. PRISTIQ (DESVENLAFAXINE SUCCINATE) [Concomitant]
  6. TOPIRAMATE (TOPIRAMATE) [Concomitant]
  7. TRAZODONE (TRAZODONE) [Concomitant]
  8. VITAMIN C (ASCORBIC ACID) [Concomitant]
  9. VITAMIN D3 (COLECALCIFEROL) [Concomitant]

REACTIONS (2)
  - Nausea [None]
  - Asthenia [None]
